FAERS Safety Report 7043790-4 (Version None)
Quarter: 2010Q4

REPORT INFORMATION
  Report Type: 
  Country: None (occurrence: None)
  Receive Date: 20101008
  Receipt Date: 20101008
  Transmission Date: 20110411
  Serious: No
  Sender: FDA-Public Use
  Company Number: None

PATIENT
  Age: 75 Year
  Sex: Female
  Weight: 66.6788 kg

DRUGS (1)
  1. METHYLPREDNISOLONE [Suspect]

REACTIONS (10)
  - ANXIETY [None]
  - CONTUSION [None]
  - DISTURBANCE IN ATTENTION [None]
  - ECONOMIC PROBLEM [None]
  - FALL [None]
  - FEELING ABNORMAL [None]
  - IMPAIRED WORK ABILITY [None]
  - LACERATION [None]
  - MUSCLE SPASMS [None]
  - NERVOUSNESS [None]
